FAERS Safety Report 6145441-X (Version None)
Quarter: 2009Q2

REPORT INFORMATION
  Report Type: 
  Country: None (occurrence: None)
  Receive Date: 20090402
  Receipt Date: 20090323
  Transmission Date: 20091009
  Serious: Yes (Life-Threatening, Hospitalization, Other)
  Sender: FDA-Public Use
  Company Number: DSA_33248_2009

PATIENT
  Sex: Female
  Weight: 68.4932 kg

DRUGS (8)
  1. XENAZINE [Suspect]
     Indication: HUNTINGTON'S CHOREA
     Dosage: 25 MG, QD, 12. 5 MG, TID, 12.5 MG QD, ORAL, 12.5 MG, TID
     Route: 048
     Dates: start: 20090101, end: 20090101
  2. XENAZINE [Suspect]
     Indication: HUNTINGTON'S CHOREA
     Dosage: 25 MG, QD, 12. 5 MG, TID, 12.5 MG QD, ORAL, 12.5 MG, TID
     Route: 048
     Dates: start: 20090115, end: 20090101
  3. XENAZINE [Suspect]
     Indication: HUNTINGTON'S CHOREA
     Dosage: 25 MG, QD, 12. 5 MG, TID, 12.5 MG QD, ORAL, 12.5 MG, TID
     Route: 048
     Dates: start: 20090101, end: 20090216
  4. XENAZINE [Suspect]
     Indication: HUNTINGTON'S CHOREA
     Dosage: 25 MG, QD, 12. 5 MG, TID, 12.5 MG QD, ORAL, 12.5 MG, TID
     Route: 048
     Dates: start: 20090101
  5. LEXAPRO [Concomitant]
  6. NAMENDA [Concomitant]
  7. ARICEPT [Concomitant]
  8. KLONOPIN [Concomitant]

REACTIONS (5)
  - DIARRHOEA [None]
  - INSOMNIA [None]
  - NAUSEA [None]
  - SUICIDE ATTEMPT [None]
  - TREMOR [None]
